FAERS Safety Report 16702171 (Version 3)
Quarter: 2022Q4

REPORT INFORMATION
  Report Type: Report from Study
  Country: DE (occurrence: DE)
  Receive Date: 20190814
  Receipt Date: 20221231
  Transmission Date: 20230113
  Serious: Yes (Other)
  Sender: FDA-Public Use
  Company Number: DE-AUROBINDO-AUR-APL-2019-051902

PATIENT
  Age: 34 Year
  Sex: Female

DRUGS (8)
  1. ASPIRIN [Suspect]
     Active Substance: ASPIRIN
     Indication: Migraine
     Dosage: UNK
     Route: 065
  2. IBUPROFEN [Suspect]
     Active Substance: IBUPROFEN
     Indication: Migraine
     Dosage: UNK
     Route: 065
  3. ACETAMINOPHEN [Suspect]
     Active Substance: ACETAMINOPHEN
     Indication: Migraine
     Dosage: UNK,
     Route: 065
  4. HERBALS [Suspect]
     Active Substance: HERBALS
     Indication: Migraine
     Dosage: 50 MILLIGRAM, ONCE A DAY (50 MILLIGRAM DAILY;)
     Route: 065
  5. HERBALS [Suspect]
     Active Substance: HERBALS
     Dosage: 100 MILLIGRAM, DAILY
     Route: 065
  6. HYPERICUM PERFORATUM WHOLE [Suspect]
     Active Substance: HYPERICUM PERFORATUM WHOLE
     Indication: Migraine
     Dosage: UNK
     Route: 065
  7. METOCLOPRAMIDE [Concomitant]
     Active Substance: METOCLOPRAMIDE
     Indication: Product used for unknown indication
     Dosage: UNK
     Route: 065
  8. DIMETHINDENE [Concomitant]
     Active Substance: DIMETHINDENE
     Indication: Product used for unknown indication
     Dosage: UNK
     Route: 065

REACTIONS (9)
  - Hepatobiliary disease [Unknown]
  - Transaminases increased [Unknown]
  - Hepatitis acute [Unknown]
  - Hepatitis cholestatic [Recovering/Resolving]
  - Hepatic necrosis [Recovering/Resolving]
  - Malaise [Unknown]
  - Pruritus [Unknown]
  - Jaundice [Unknown]
  - Eczema [Unknown]
